FAERS Safety Report 7432954-3 (Version None)
Quarter: 2011Q2

REPORT INFORMATION
  Report Type: 
  Country: None (occurrence: None)
  Receive Date: 20110422
  Receipt Date: 20110419
  Transmission Date: 20111010
  Serious: No
  Sender: FDA-Public Use
  Company Number: US-PFIZER INC-2011032870

PATIENT
  Sex: Female
  Weight: 44.898 kg

DRUGS (13)
  1. MONOPRIL [Concomitant]
     Dosage: UNK
  2. LYRICA [Concomitant]
     Dosage: UNK
  3. FUROSEMIDE [Concomitant]
     Dosage: UNK
  4. ASCORBIC ACID/COPPER/RETINOL/TOCOPHEROL/ZINC [Concomitant]
     Dosage: UNK
  5. KLONOPIN [Concomitant]
     Dosage: 0.5 MG, 1X/DAY
     Route: 048
  6. OMEPRAZOLE [Concomitant]
     Dosage: UNK
  7. DIGOXIN [Concomitant]
     Dosage: UNK
  8. ALPHAGAN [Concomitant]
     Dosage: UNK, TWICE A DAY
  9. LIPITOR [Concomitant]
     Dosage: UNK
  10. CLONAZEPAM [Concomitant]
     Dosage: UNK
  11. ASPIRIN [Concomitant]
     Dosage: UNK
  12. XALATAN [Suspect]
     Indication: GLAUCOMA
     Dosage: 1 GTT, 1X/DAY IN EACH EYE AT BEDTIME
     Route: 047
     Dates: start: 20080627, end: 20100716
  13. CALCIUM [Concomitant]
     Dosage: UNK

REACTIONS (1)
  - RASH [None]
